FAERS Safety Report 4940567-8 (Version None)
Quarter: 2006Q1

REPORT INFORMATION
  Report Type: 
  Country: None (occurrence: None)
  Receive Date: 20060201
  Receipt Date: 20060201
  Transmission Date: 20060701
  Serious: No
  Sender: FDA-Public Use
  Company Number: 2005PV003631

PATIENT
  Age: 57 Year
  Sex: Female
  Weight: 83.4619 kg

DRUGS (6)
  1. BYETTA [Suspect]
     Indication: DIABETES MELLITUS NON-INSULIN-DEPENDENT
     Dosage: SEE IMAGE
     Route: 058
     Dates: start: 20050923, end: 20051025
  2. BYETTA [Suspect]
     Indication: DIABETES MELLITUS NON-INSULIN-DEPENDENT
     Dosage: SEE IMAGE
     Route: 058
     Dates: start: 20051026
  3. METFORMIN [Concomitant]
  4. FIORINAL [Concomitant]
  5. LEVOTHYROXINE SODIUM [Concomitant]
  6. ESTRADIOL [Concomitant]

REACTIONS (18)
  - ASTHENIA [None]
  - BLOOD GLUCOSE DECREASED [None]
  - BLOOD GLUCOSE INCREASED [None]
  - BLOOD PRESSURE INCREASED [None]
  - COUGH [None]
  - DECREASED APPETITE [None]
  - DIARRHOEA [None]
  - DIZZINESS [None]
  - HEADACHE [None]
  - HYPERHIDROSIS [None]
  - INJECTION SITE PAIN [None]
  - NASOPHARYNGITIS [None]
  - NAUSEA [None]
  - PHARYNGOLARYNGEAL PAIN [None]
  - PYREXIA [None]
  - RESPIRATORY TRACT CONGESTION [None]
  - RHINORRHOEA [None]
  - WEIGHT DECREASED [None]
